FAERS Safety Report 6311691-2 (Version None)
Quarter: 2009Q3

REPORT INFORMATION
  Report Type: 
  Country: None (occurrence: None)
  Receive Date: 20090817
  Receipt Date: 20090807
  Transmission Date: 20100115
  Serious: Yes (Other)
  Sender: FDA-Public Use
  Company Number: US-JNJFOC-20090803072

PATIENT
  Age: 85 Year
  Sex: Male
  Weight: 72.58 kg

DRUGS (3)
  1. TYLENOL (CAPLET) [Suspect]
     Route: 048
  2. TYLENOL (CAPLET) [Suspect]
     Indication: TOOTHACHE
     Route: 048
  3. HYDROCODONE [Suspect]
     Indication: TOOTHACHE

REACTIONS (2)
  - AGITATION [None]
  - HALLUCINATION [None]
